FAERS Safety Report 4964272-7 (Version None)
Quarter: 2006Q1

REPORT INFORMATION
  Report Type: 
  Country: None (occurrence: None)
  Receive Date: 20060331
  Receipt Date: 20060315
  Transmission Date: 20060701
  Serious: No
  Sender: FDA-Public Use
  Company Number: US200512003749

PATIENT
  Age: 80 Year
  Sex: Female
  Weight: 45.4 kg

DRUGS (3)
  1. FORTEO [Suspect]
     Indication: OSTEOPOROSIS
     Dosage: 20 UG, DAILY (1/D)
     Dates: start: 20030708, end: 20050701
  2. FORTEO [Concomitant]
  3. TRAMADOL HCL [Concomitant]

REACTIONS (4)
  - BONE PAIN [None]
  - LUNG NEOPLASM MALIGNANT [None]
  - SPINAL COLUMN STENOSIS [None]
  - URINARY INCONTINENCE [None]
